FAERS Safety Report 8539996-5 (Version None)
Quarter: 2012Q3

REPORT INFORMATION
  Report Type: 
  Country: None (occurrence: None)
  Receive Date: 20120726
  Receipt Date: 20120717
  Transmission Date: 20120928
  Serious: Yes (Other)
  Sender: FDA-Public Use
  Company Number: IT-ASTRAZENECA-2012SE50054

PATIENT
  Age: 3816 Day
  Sex: Male

DRUGS (2)
  1. PROMAZINE HYDROCHLORIDE [Concomitant]
     Dosage: 50 GGT 4G/100 ML
     Route: 048
  2. SEROQUEL [Suspect]
     Indication: AUTISM
     Route: 048
     Dates: start: 20120608, end: 20120703

REACTIONS (3)
  - CONDUCT DISORDER [None]
  - BELLIGERENCE [None]
  - OFF LABEL USE [None]
